FAERS Safety Report 7051381-4 (Version None)
Quarter: 2010Q4

REPORT INFORMATION
  Report Type: 
  Country: None (occurrence: None)
  Receive Date: 20101013
  Receipt Date: 20100928
  Transmission Date: 20110411
  Serious: Yes (Hospitalization)
  Sender: FDA-Public Use
  Company Number: 2010AM003144

PATIENT
  Age: 67 Year
  Sex: Female
  Weight: 54.4316 kg

DRUGS (3)
  1. SYMLIN [Suspect]
     Indication: TYPE 1 DIABETES MELLITUS
     Dosage: 240 MCG; TID; SC, 60 MCG; TID; SC, 45 MCG; TID; SC, 30 MCG; TID; SC, 15 MCG; TID; SC
     Route: 058
     Dates: start: 20050101, end: 20050101
  2. SYMLIN [Suspect]
     Indication: TYPE 1 DIABETES MELLITUS
     Dosage: 240 MCG; TID; SC, 60 MCG; TID; SC, 45 MCG; TID; SC, 30 MCG; TID; SC, 15 MCG; TID; SC
     Route: 058
     Dates: start: 20050801, end: 20050101
  3. NOVOLOG [Concomitant]

REACTIONS (2)
  - ABDOMINAL HERNIA [None]
  - BLOOD GLUCOSE INCREASED [None]
